FAERS Safety Report 7334059-9 (Version None)
Quarter: 2011Q1

REPORT INFORMATION
  Report Type: 
  Country: None (occurrence: None)
  Receive Date: 20110307
  Receipt Date: 20110301
  Transmission Date: 20110831
  Serious: Yes (Other)
  Sender: FDA-Public Use
  Company Number: US-BAYER-2011-020031

PATIENT
  Sex: Male

DRUGS (2)
  1. YAZ [Suspect]
     Route: 064
  2. YASMIN [Suspect]
     Route: 064

REACTIONS (1)
  - ATRIAL SEPTAL DEFECT [None]
